FAERS Safety Report 24333183 (Version 1)
Quarter: 2024Q3

REPORT INFORMATION
  Report Type: Spontaneous
  Country: JP (occurrence: JP)
  Receive Date: 20240918
  Receipt Date: 20240918
  Transmission Date: 20241016
  Serious: Yes (Hospitalization)
  Sender: ELI LILLY AND CO
  Company Number: JP-NShinyaku-EVA202400599ZZLILLY

PATIENT
  Age: 88 Year
  Sex: Male

DRUGS (5)
  1. TADALAFIL [Suspect]
     Active Substance: TADALAFIL
     Indication: Product used for unknown indication
     Dosage: 5 MG, DAILY
     Route: 048
  2. TADALAFIL [Suspect]
     Active Substance: TADALAFIL
     Dosage: 2.5 MG, DAILY
     Route: 048
  3. TADALAFIL [Suspect]
     Active Substance: TADALAFIL
     Dosage: 2.5 MG, DAILY
     Route: 048
     Dates: start: 202311
  4. TADALAFIL [Suspect]
     Active Substance: TADALAFIL
     Dosage: 2.5 MG, OTHER
     Route: 048
  5. TADALAFIL [Suspect]
     Active Substance: TADALAFIL
     Dosage: 2.5 MG, DAILY
     Route: 048
     Dates: start: 202408

REACTIONS (9)
  - Inguinal hernia [Unknown]
  - Pollakiuria [Unknown]
  - Irritable bowel syndrome [Unknown]
  - Eczema [Recovered/Resolved]
  - Spinal disorder [Unknown]
  - Muscular weakness [Unknown]
  - Off label use [Unknown]
  - Sudden hearing loss [Unknown]
  - Myalgia [Unknown]

NARRATIVE: CASE EVENT DATE: 20240817
